FAERS Safety Report 21041383 (Version 2)
Quarter: 2022Q3

REPORT INFORMATION
  Report Type: Report from Study
  Country: CA (occurrence: CA)
  Receive Date: 20220705
  Receipt Date: 20220730
  Transmission Date: 20221026
  Serious: Yes (Hospitalization)
  Sender: FDA-Public Use
  Company Number: CA-ABBVIE-22K-028-4449559-00

PATIENT
  Age: 42 Year
  Sex: Female
  Weight: 59.020 kg

DRUGS (5)
  1. SKYRIZI [Suspect]
     Active Substance: RISANKIZUMAB-RZAA
     Indication: Psoriasis
     Route: 058
     Dates: start: 20201221
  2. CIPROFLOXACIN HYDROCHLORIDE [Concomitant]
     Active Substance: CIPROFLOXACIN HYDROCHLORIDE
     Indication: Bacterial infection
     Route: 065
  3. HYDROMORPHONE [Concomitant]
     Active Substance: HYDROMORPHONE
     Indication: Psoriasis
     Route: 065
     Dates: start: 20220624, end: 202207
  4. NAPROXEN [Concomitant]
     Active Substance: NAPROXEN
     Indication: Psoriasis
     Dosage: AS NEEDED
     Route: 048
  5. PREVACID [Concomitant]
     Active Substance: LANSOPRAZOLE
     Indication: Product used for unknown indication

REACTIONS (12)
  - Ear infection [Recovering/Resolving]
  - Ear injury [Unknown]
  - Blister [Unknown]
  - Rash [Unknown]
  - Dysphagia [Unknown]
  - Cellulitis [Unknown]
  - Perichondritis [Unknown]
  - Wound infection bacterial [Unknown]
  - Fatigue [Unknown]
  - Psoriasis [Unknown]
  - Ear swelling [Recovered/Resolved]
  - Erythema [Recovered/Resolved]

NARRATIVE: CASE EVENT DATE: 20220601
